FAERS Safety Report 5176539-0 (Version None)
Quarter: 2006Q4

REPORT INFORMATION
  Report Type: 
  Country: None (occurrence: None)
  Receive Date: 20061207
  Receipt Date: 20061128
  Transmission Date: 20070319
  Serious: Yes (Death, Hospitalization)
  Sender: FDA-Public Use
  Company Number: 2006EU003151

PATIENT
  Age: 64 Year
  Sex: Male

DRUGS (3)
  1. PROGRAF [Suspect]
     Indication: STEM CELL TRANSPLANT
  2. CYCLOSPORINE [Suspect]
     Indication: STEM CELL TRANSPLANT
  3. CORTICOSTEROIDS() [Suspect]
     Indication: STEM CELL TRANSPLANT

REACTIONS (9)
  - CACHEXIA [None]
  - CONJUNCTIVITIS [None]
  - DIARRHOEA [None]
  - DUODENITIS [None]
  - GRAFT VERSUS HOST DISEASE [None]
  - PANCYTOPENIA [None]
  - PNEUMONIA [None]
  - RASH MACULO-PAPULAR [None]
  - SICCA SYNDROME [None]
